FAERS Safety Report 4723590-8 (Version None)
Quarter: 2005Q3

REPORT INFORMATION
  Report Type: 
  Country: None (occurrence: None)
  Receive Date: 20050725
  Receipt Date: 20041217
  Transmission Date: 20060218
  Serious: Yes (Death, Hospitalization, Other)
  Sender: FDA-Public Use
  Company Number: US-MERCK-0412USA02399

PATIENT
  Age: 66 Year
  Sex: Male
  Weight: 90 kg

DRUGS (7)
  1. VIOXX [Suspect]
     Indication: ANALGESIC EFFECT
     Route: 048
     Dates: start: 20020324, end: 20020331
  2. QUININE SULFATE [Concomitant]
     Route: 065
  3. RENAGEL [Concomitant]
     Route: 065
  4. GLYBURIDE [Concomitant]
     Route: 065
  5. [THERAPY UNSPECIFIED] [Concomitant]
     Route: 065
  6. TOPROL-XL [Concomitant]
     Route: 065
  7. LAMISIL [Concomitant]
     Route: 065

REACTIONS (23)
  - ANAEMIA [None]
  - ANXIETY [None]
  - AORTIC VALVE INCOMPETENCE [None]
  - CANDIDIASIS [None]
  - CARDIAC ARREST [None]
  - CHEST WALL PAIN [None]
  - DEEP VEIN THROMBOSIS [None]
  - ENDOCARDITIS [None]
  - FALL [None]
  - GASTRIC POLYPS [None]
  - GASTRITIS [None]
  - GASTROINTESTINAL HAEMORRHAGE [None]
  - ILIAC VEIN THROMBOSIS [None]
  - MITRAL VALVE INCOMPETENCE [None]
  - MYOCARDIAL INFARCTION [None]
  - PERIPHERAL VASCULAR DISORDER [None]
  - PULMONARY HYPERTENSION [None]
  - SEPSIS [None]
  - SEPSIS SYNDROME [None]
  - TRICUSPID VALVE INCOMPETENCE [None]
  - VENOUS OCCLUSION [None]
  - VENOUS STENOSIS [None]
  - VENTRICULAR HYPERTROPHY [None]
